FAERS Safety Report 22325488 (Version 4)
Quarter: 2024Q2

REPORT INFORMATION
  Report Type: Spontaneous
  Country: US (occurrence: US)
  Receive Date: 20230516
  Receipt Date: 20240411
  Transmission Date: 20240716
  Serious: No
  Sender: FDA-Public Use
  Company Number: US-PFIZER INC-PV202300084490

PATIENT
  Age: 58 Year
  Sex: Male
  Weight: 87.528 kg

DRUGS (2)
  1. INLYTA [Suspect]
     Active Substance: AXITINIB
     Indication: Renal cell carcinoma
     Dosage: 1 MG
  2. INLYTA [Suspect]
     Active Substance: AXITINIB
     Dosage: TAKE 3 TABLETS (3 MG TOTAL) BY MOUTH 2 TIMES DAILY
     Route: 048

REACTIONS (1)
  - Ear disorder [Unknown]
